FAERS Safety Report 9264374 (Version 1)
Quarter: 2013Q2

REPORT INFORMATION
  Report Type: Spontaneous
  Country: TH (occurrence: TH)
  Receive Date: 20130430
  Receipt Date: 20130430
  Transmission Date: 20140414
  Serious: Yes (Death)
  Sender: FDA-Public Use
  Company Number: TH-BAXTER-2013BAX015239

PATIENT
  Age: 77 Year
  Sex: Female

DRUGS (1)
  1. DIANEAL PD-2 PERITONEAL DIALYSIS SOL WITH 1.5 PERCENT DEXT [Suspect]
     Indication: PERITONEAL DIALYSIS
     Route: 033
     Dates: start: 20110808

REACTIONS (1)
  - Death [Fatal]
